FAERS Safety Report 7198489-0 (Version None)
Quarter: 2010Q4

REPORT INFORMATION
  Report Type: 
  Country: None (occurrence: None)
  Receive Date: 20101227
  Receipt Date: 20101215
  Transmission Date: 20110411
  Serious: Yes (Hospitalization)
  Sender: FDA-Public Use
  Company Number: US-ASTRAZENECA-2010SE59286

PATIENT
  Age: 56 Year
  Sex: Female
  Weight: 77.1 kg

DRUGS (7)
  1. CRESTOR [Suspect]
     Indication: HYPERCHOLESTEROLAEMIA
     Route: 048
     Dates: start: 20100201
  2. CRESTOR [Suspect]
     Route: 048
     Dates: start: 20100101
  3. CRESTOR [Suspect]
     Route: 048
     Dates: start: 20100101
  4. CRESTOR [Suspect]
     Route: 048
     Dates: start: 20100101, end: 20101201
  5. SYNTHROID [Concomitant]
  6. VIT D [Concomitant]
  7. COQ10 [Concomitant]

REACTIONS (15)
  - ABDOMINAL PAIN UPPER [None]
  - AGRAPHIA [None]
  - CHEST PAIN [None]
  - DECREASED APPETITE [None]
  - FATIGUE [None]
  - FIBROMYALGIA [None]
  - GASTROOESOPHAGEAL REFLUX DISEASE [None]
  - HYPOKINESIA [None]
  - IMPAIRED DRIVING ABILITY [None]
  - NAUSEA [None]
  - NECK PAIN [None]
  - OEDEMA PERIPHERAL [None]
  - PAIN IN EXTREMITY [None]
  - POLLAKIURIA [None]
  - SLEEP APNOEA SYNDROME [None]
